FAERS Safety Report 11351735 (Version 1)
Quarter: 2015Q3

REPORT INFORMATION
  Report Type: Spontaneous
  Country: US (occurrence: US)
  Receive Date: 20150807
  Receipt Date: 20150807
  Transmission Date: 20151125
  Serious: No
  Sender: FDA-Public Use
  Company Number: US-JNJFOC-20150511580

PATIENT
  Age: 57 Year
  Sex: Female
  Weight: 77.11 kg

DRUGS (2)
  1. WOMENS ROGAINE UNSCENTED [Suspect]
     Active Substance: MINOXIDIL
     Route: 061
  2. WOMENS ROGAINE UNSCENTED [Suspect]
     Active Substance: MINOXIDIL
     Indication: ALOPECIA
     Route: 061
     Dates: start: 20150514, end: 20150514

REACTIONS (10)
  - Nausea [Unknown]
  - Inappropriate schedule of drug administration [Unknown]
  - Head discomfort [Unknown]
  - Throat irritation [Unknown]
  - Chest pain [Unknown]
  - Incorrect dose administered [Unknown]
  - Product formulation issue [Unknown]
  - Malaise [Unknown]
  - Wrong technique in product usage process [Unknown]
  - Nutritional supplementation [Unknown]

NARRATIVE: CASE EVENT DATE: 20150514
